FAERS Safety Report 4995869-6 (Version None)
Quarter: 2006Q2

REPORT INFORMATION
  Report Type: 
  Country: None (occurrence: None)
  Receive Date: 20060504
  Receipt Date: 20050330
  Transmission Date: 20061013
  Serious: Yes (Hospitalization)
  Sender: FDA-Public Use
  Company Number: FRPFM-E-20060032

PATIENT
  Age: 25 Year
  Sex: Female

DRUGS (6)
  1. NAVELBINE [Suspect]
     Dates: start: 20041119, end: 20050316
  2. HERCEPTIN [Suspect]
     Dates: start: 20040501, end: 20051119
  3. HERCEPTIN [Suspect]
     Dates: start: 20051001, end: 20060101
  4. NAVELBINE [Suspect]
     Dates: start: 20051001, end: 20060101
  5. TAXOTERE [Concomitant]
  6. CARBOPLATIN [Concomitant]

REACTIONS (2)
  - BLOOD DISORDER [None]
  - CARDIAC FAILURE [None]
